FAERS Safety Report 8525947-6 (Version None)
Quarter: 2012Q3

REPORT INFORMATION
  Report Type: 
  Country: None (occurrence: None)
  Receive Date: 20120720
  Receipt Date: 20120716
  Transmission Date: 20120928
  Serious: No
  Sender: FDA-Public Use
  Company Number: US-PFIZER INC-2012172048

PATIENT
  Sex: Male
  Weight: 102 kg

DRUGS (10)
  1. COUMADIN [Concomitant]
     Dosage: UNK
  2. FLUOXETINE [Concomitant]
     Dosage: 40 MG, 1X/DAY
  3. JANUVIA [Concomitant]
     Indication: DIABETES MELLITUS
     Dosage: 100 MG, 1X/DAY
  4. GLIPIZIDE [Suspect]
     Indication: DIABETES MELLITUS
     Dosage: 10 MG, 1X/DAY
     Route: 048
     Dates: start: 20100101, end: 20120701
  5. PROVIGIL [Concomitant]
     Dosage: 200 MG, 2X/DAY
  6. LYRICA [Concomitant]
     Dosage: 200 MG, 2X/DAY
  7. METFORMIN [Concomitant]
     Indication: DIABETES MELLITUS
     Dosage: 1000 MG, 2X/DAY
  8. OPANA [Concomitant]
     Dosage: 30 MG, 2X/DAY
  9. OXYCODONE [Concomitant]
     Dosage: 15 MG, 6X/DAY
  10. TRICOR [Concomitant]
     Dosage: 160 MG, 1X/DAY

REACTIONS (1)
  - MEDICATION RESIDUE [None]
